FAERS Safety Report 8619995 (Version 4)
Quarter: 2012Q4

REPORT INFORMATION
  Report Type: 
  Country: US (occurrence: US)
  Receive Date: 20120618
  Receipt Date: 20121010
  Transmission Date: 20130627
  Serious: Yes (Hospitalization, Other)
  Sender: FDA-Public Use
  Company Number: US-MILLENNIUM PHARMACEUTICALS, INC.-2012-04100

PATIENT
  Age: 62 Year
  Sex: Male
  Weight: 108 kg

DRUGS (3)
  1. VELCADE [Suspect]
     Indication: ACUTE MYELOID LEUKAEMIA
     Dosage: 1.3 mg/m2, Cyclic
     Route: 058
     Dates: start: 20120518, end: 20120528
  2. DECITABINE [Suspect]
     Indication: ACUTE MYELOID LEUKAEMIA
     Dosage: 20 mg/m2, Cyclic
     Route: 042
     Dates: start: 20120518, end: 20120528
  3. OMEPRAZOLE [Concomitant]
     Indication: PRODUCT USED FOR UNKNOWN INDICATION

REACTIONS (5)
  - Non-cardiac chest pain [Recovered/Resolved]
  - Orthostatic hypotension [Unknown]
  - Arthritis bacterial [Recovered/Resolved]
  - Sepsis [Unknown]
  - Hypophosphataemia [Recovered/Resolved]
